FAERS Safety Report 19044914 (Version 1)
Quarter: 2021Q1

REPORT INFORMATION
  Report Type: Spontaneous
  Country: CA (occurrence: CA)
  Receive Date: 20210322
  Receipt Date: 20210322
  Transmission Date: 20210420
  Serious: Yes (Other)
  Sender: FDA-Public Use
  Company Number: CA-009507513-2103CAN005252

PATIENT
  Sex: Female

DRUGS (1)
  1. INVANZ [Suspect]
     Active Substance: ERTAPENEM SODIUM
     Indication: ABDOMINAL INFECTION
     Dates: start: 20210109, end: 20210208

REACTIONS (5)
  - Pathogen resistance [Unknown]
  - Psoas abscess [Unknown]
  - Escherichia infection [Unknown]
  - Klebsiella infection [Unknown]
  - Splenic abscess [Unknown]
